FAERS Safety Report 5671991-6 (Version None)
Quarter: 2008Q1

REPORT INFORMATION
  Report Type: 
  Country: None (occurrence: None)
  Receive Date: 20080314
  Receipt Date: 20080227
  Transmission Date: 20080703
  Serious: Yes (Life-Threatening, Hospitalization)
  Sender: FDA-Public Use
  Company Number: 2008EU000423

PATIENT
  Age: 69 Year
  Sex: Male
  Weight: 98.5 kg

DRUGS (7)
  1. PROGRAF [Suspect]
     Indication: RENAL TRANSPLANT
     Dosage: /D
  2. NEORECORMON (EPOETIN BETA) [Suspect]
     Indication: NEPHROGENIC ANAEMIA
     Dosage: 4000 IU, 3XWEEKLY, SUBCUTANEOUS
     Route: 058
     Dates: start: 20041001, end: 20070904
  3. MYCOPHENOLATE MOFETIL [Suspect]
     Indication: RENAL TRANSPLANT
     Dosage: /D
     Dates: end: 20070901
  4. AZATHIOPRINE [Suspect]
     Dosage: /D
  5. ARANESP [Suspect]
     Indication: NEPHROGENIC ANAEMIA
     Dosage: 40 UG,OTHER, SUBCUTANEOUS
     Route: 058
     Dates: start: 20070904
  6. ARANESP [Suspect]
     Indication: NEPHROGENIC ANAEMIA
     Dosage: 40 UG,OTHER, SUBCUTANEOUS
     Route: 058
     Dates: start: 20070904
  7. ARANESP [Suspect]
     Indication: NEPHROGENIC ANAEMIA
     Dosage: 40 UG,OTHER, SUBCUTANEOUS
     Route: 058
     Dates: start: 20070904

REACTIONS (11)
  - ANISOCYTOSIS [None]
  - BLOOD CREATINE INCREASED [None]
  - BONE MARROW TOXICITY [None]
  - EPSTEIN-BARR VIRUS TEST POSITIVE [None]
  - HAEMOGLOBIN DECREASED [None]
  - MEAN CELL VOLUME INCREASED [None]
  - MONOCYTE COUNT INCREASED [None]
  - NEUTROPHIL COUNT INCREASED [None]
  - RED BLOOD CELL COUNT DECREASED [None]
  - SERUM FERRITIN INCREASED [None]
  - TRANSFERRIN SATURATION INCREASED [None]
